FAERS Safety Report 24114437 (Version 1)
Quarter: 2024Q3

REPORT INFORMATION
  Report Type: Spontaneous
  Country: IN (occurrence: IN)
  Receive Date: 20240720
  Receipt Date: 20240720
  Transmission Date: 20241017
  Serious: Yes (Other)
  Sender: RANBAXY
  Company Number: IN-SUN PHARMACEUTICAL INDUSTRIES LTD-2024R1-457575

PATIENT
  Age: 25 Year
  Sex: Female

DRUGS (1)
  1. AZITHROMYCIN [Suspect]
     Active Substance: AZITHROMYCIN
     Indication: Scrub typhus
     Dosage: 500 MILLIGRAM
     Route: 048

REACTIONS (3)
  - Exposure during pregnancy [Unknown]
  - Foetal growth restriction [Unknown]
  - Premature delivery [Unknown]
